FAERS Safety Report 9789435 (Version 1)
Quarter: 2013Q4

REPORT INFORMATION
  Report Type: Spontaneous
  Country: RS (occurrence: RS)
  Receive Date: 20131231
  Receipt Date: 20131231
  Transmission Date: 20140711
  Serious: Yes (Death, Disabling, Other)
  Sender: FDA-Public Use
  Company Number: RS-ROCHE-1325481

PATIENT
  Sex: Female

DRUGS (1)
  1. XELODA [Suspect]
     Indication: BREAST CANCER METASTATIC
     Dosage: 4000MG/M2 FOR 10 DAYS + 3500MG/M2 FOR 4 DAYS
     Route: 048
     Dates: start: 20130722, end: 201310

REACTIONS (3)
  - Disease progression [Fatal]
  - Visual impairment [Not Recovered/Not Resolved]
  - Optic atrophy [Unknown]
